FAERS Safety Report 22373036 (Version 2)
Quarter: 2023Q2

REPORT INFORMATION
  Report Type: Spontaneous
  Country: US (occurrence: US)
  Receive Date: 20230526
  Receipt Date: 20230630
  Transmission Date: 20230721
  Serious: No
  Sender: FDA-Public Use
  Company Number: US-BRISTOL-MYERS SQUIBB COMPANY-2023-074581

PATIENT
  Age: 86 Year
  Sex: Female

DRUGS (1)
  1. REVLIMID [Suspect]
     Active Substance: LENALIDOMIDE
     Indication: Follicular lymphoma
     Dosage: 1 QAMX21, OFF 7 DAYS
     Dates: start: 20230330

REACTIONS (2)
  - Dysgeusia [Unknown]
  - Taste disorder [Unknown]

NARRATIVE: CASE EVENT DATE: 20230330
